FAERS Safety Report 25343044 (Version 1)
Quarter: 2025Q2

REPORT INFORMATION
  Report Type: Spontaneous
  Country: US (occurrence: None)
  Receive Date: 20250519
  Receipt Date: 20250519
  Transmission Date: 20250716
  Serious: No
  Sender: FDA-CTU
  Company Number: None

PATIENT
  Age: 30 Year
  Sex: Male
  Weight: 78.75 kg

DRUGS (1)
  1. HERBALS [Suspect]
     Active Substance: HERBALS
     Indication: Disturbance in attention
     Dosage: OTHER QUANTITY : 1 TEASPOON(S);?FREQUENCY : DAILY;?
     Route: 048

REACTIONS (7)
  - Panic attack [None]
  - Anxiety [None]
  - Suicidal ideation [None]
  - Muscle twitching [None]
  - Drug dependence [None]
  - Dizziness [None]
  - Impaired work ability [None]

NARRATIVE: CASE EVENT DATE: 20250519
